FAERS Safety Report 14291157 (Version 3)
Quarter: 2018Q1

REPORT INFORMATION
  Report Type: Report from Study
  Country: US (occurrence: US)
  Receive Date: 20171215
  Receipt Date: 20180201
  Transmission Date: 20180509
  Serious: No
  Sender: FDA-Public Use
  Company Number: US-009507513-1712USA004458

PATIENT
  Age: 30 Year
  Sex: Female
  Weight: 91.61 kg

DRUGS (1)
  1. IMPLANON [Suspect]
     Active Substance: ETONOGESTREL
     Indication: CONTRACEPTION
     Dosage: 68 MG (1 ROD), EVERY 3 YEARS; STRENGTH: 68MG
     Route: 059
     Dates: start: 2013, end: 20170830

REACTIONS (2)
  - Incorrect drug administration duration [Unknown]
  - Implant site pain [Not Recovered/Not Resolved]

NARRATIVE: CASE EVENT DATE: 20170830
